FAERS Safety Report 26148344 (Version 1)
Quarter: 2025Q4

REPORT INFORMATION
  Report Type: Spontaneous
  Country: EU (occurrence: EU)
  Receive Date: 20251212
  Receipt Date: 20251212
  Transmission Date: 20260117
  Serious: Yes (Other)
  Sender: TEVA
  Company Number: None

PATIENT
  Age: 67 Year
  Sex: Female

DRUGS (8)
  1. EZETIMIBE [Suspect]
     Active Substance: EZETIMIBE
     Indication: Hypercholesterolaemia
     Dosage: EXPIRY DATE: 02/28
     Route: 048
     Dates: start: 20251020, end: 20251031
  2. Influvac sub-unit [Concomitant]
     Indication: Influenza immunisation
     Dosage: SUSPENSION FOR INJECTION IN PRE-FILLED SYRINGE INFLUENZA VACCINE (SURFACE ANTIGEN, INACTIVATED)
     Route: 030
     Dates: start: 20251020, end: 20251020
  3. PREDNISOLONE [Concomitant]
     Active Substance: PREDNISOLONE
     Indication: Respiratory tract infection
     Dosage: ^6 TABS PER DAY FOR 3 DAYS.^
     Route: 065
     Dates: start: 20251002
  4. VALSARTAN [Concomitant]
     Active Substance: VALSARTAN
     Indication: Hypertension
     Dosage: ^BEEN TAKING THIS FOR A LONG TIME, NOT SURE WHEN I STARTED^
     Route: 048
     Dates: start: 202401
  5. DOXYCYCLINE [Concomitant]
     Active Substance: DOXYCYCLINE
     Indication: Respiratory tract infection
     Dosage: ^2 TABLETS.^
     Route: 065
     Dates: start: 20251002
  6. AMLODIPINE BESYLATE [Concomitant]
     Active Substance: AMLODIPINE BESYLATE
     Indication: Hypertension
     Dosage: ^BEEN TAKING THIS FOR A LONG TIME, NOT SURE OF EXACT DATE^
     Route: 065
     Dates: start: 202401
  7. LEVOTHYROXINE [Concomitant]
     Active Substance: LEVOTHYROXINE
     Indication: Hypothyroidism
     Dosage: ^BEEN TAKING THIS FOR MANY YEARS^
     Route: 048
     Dates: start: 202401
  8. Beconase Hayfever [Concomitant]
     Indication: Asthma prophylaxis
     Dosage: ^2 PUFFS AM AND PM.^
     Route: 045
     Dates: start: 20240101

REACTIONS (12)
  - Musculoskeletal stiffness [Recovering/Resolving]
  - Irritability [Recovered/Resolved]
  - Depressed mood [Recovered/Resolved]
  - Diarrhoea [Unknown]
  - Fatigue [Recovered/Resolved]
  - Muscular weakness [Recovered/Resolved]
  - Lymph node pain [Recovered/Resolved]
  - Vomiting [Unknown]
  - Neck pain [Recovered/Resolved]
  - Back pain [Recovered/Resolved]
  - Nausea [Unknown]
  - Arthralgia [Recovered/Resolved]

NARRATIVE: CASE EVENT DATE: 20251022
